FAERS Safety Report 5398862-7 (Version None)
Quarter: 2007Q3

REPORT INFORMATION
  Report Type: 
  Country: None (occurrence: None)
  Receive Date: 20070727
  Receipt Date: 20070724
  Transmission Date: 20080115
  Serious: Yes (Other)
  Sender: FDA-Public Use
  Company Number: PHBS2007GR12383

PATIENT
  Age: 66 Year
  Sex: Female

DRUGS (2)
  1. AREDIA [Suspect]
     Dates: start: 20000101
  2. ZOMETA [Suspect]

REACTIONS (5)
  - BIOPSY [None]
  - LOCALISED OEDEMA [None]
  - OSTEONECROSIS [None]
  - PURULENT DISCHARGE [None]
  - SQUAMOUS CELL CARCINOMA [None]
